FAERS Safety Report 8223634-5 (Version None)
Quarter: 2012Q1

REPORT INFORMATION
  Report Type: 
  Country: None (occurrence: None)
  Receive Date: 20120321
  Receipt Date: 20120316
  Transmission Date: 20120608
  Serious: Yes (Life-Threatening)
  Sender: FDA-Public Use
  Company Number: US-PFIZER INC-2011099693

PATIENT
  Sex: Female
  Weight: 54.422 kg

DRUGS (1)
  1. POTASSIUM PENCILLIN G [Suspect]
     Dosage: UNK
     Dates: start: 19480101

REACTIONS (1)
  - DRUG HYPERSENSITIVITY [None]
